FAERS Safety Report 24267650 (Version 1)
Quarter: 2024Q3

REPORT INFORMATION
  Report Type: Spontaneous
  Country: TN (occurrence: TN)
  Receive Date: 20240830
  Receipt Date: 20240830
  Transmission Date: 20241016
  Serious: Yes (Hospitalization)
  Sender: NOVITIUM PHARMA
  Company Number: TN-NOVITIUMPHARMA-2024TNNVP01701

PATIENT
  Age: 24 Year
  Sex: Female

DRUGS (4)
  1. ACYCLOVIR [Suspect]
     Active Substance: ACYCLOVIR
     Indication: Encephalitis
  2. CEFOTAXIME [Concomitant]
     Active Substance: CEFOTAXIME SODIUM
     Indication: Encephalitis
  3. AMPICILLIN [Concomitant]
     Active Substance: AMPICILLIN
     Indication: Encephalitis
  4. GENTAMICIN [Concomitant]
     Active Substance: GENTAMICIN
     Indication: Encephalitis

REACTIONS (1)
  - Epstein-Barr virus infection [Unknown]
